FAERS Safety Report 5138550-5 (Version None)
Quarter: 2006Q4

REPORT INFORMATION
  Report Type: 
  Country: None (occurrence: None)
  Receive Date: 20061030
  Receipt Date: 20060313
  Transmission Date: 20070319
  Serious: No
  Sender: FDA-Public Use
  Company Number: US-GLAXOSMITHKLINE-A0597347A

PATIENT
  Age: 78 Year
  Sex: Male

DRUGS (10)
  1. ADVAIR HFA [Suspect]
     Indication: ASTHMA
     Dosage: 1PUFF TWICE PER DAY
     Route: 055
     Dates: start: 20030101
  2. ALBUTEROL [Concomitant]
  3. METOPROLOL TARTRATE [Concomitant]
  4. LEXAPRO [Concomitant]
  5. AMIODARONE HCL [Concomitant]
  6. UNKNOWN MEDICATION [Concomitant]
  7. FOLIC ACID [Concomitant]
  8. LIPITOR [Concomitant]
  9. MOBIC [Concomitant]
  10. CLONAZEPAM [Concomitant]

REACTIONS (3)
  - COUGH [None]
  - DRUG INEFFECTIVE [None]
  - PHARMACEUTICAL PRODUCT COMPLAINT [None]
